FAERS Safety Report 5096855-0 (Version None)
Quarter: 2006Q3

REPORT INFORMATION
  Report Type: 
  Country: None (occurrence: None)
  Receive Date: 20060901
  Receipt Date: 20060901
  Transmission Date: 20061208
  Serious: Yes (Life-Threatening, Hospitalization, Disabling, Other)
  Sender: FDA-Public Use
  Company Number: None

PATIENT
  Age: 28 Year
  Sex: Female
  Weight: 77.1115 kg

DRUGS (6)
  1. ZOLOFT [Suspect]
     Indication: ANXIETY
     Dosage: 100MG  1X DAILY ORAL UPON KNOWLEDGE OF PREGNANCY
     Route: 048
  2. ZOLOFT [Suspect]
     Indication: DEPRESSION
     Dosage: 100MG  1X DAILY ORAL UPON KNOWLEDGE OF PREGNANCY
     Route: 048
  3. ZOLOFT [Suspect]
     Indication: FEAR
     Dosage: 100MG  1X DAILY ORAL UPON KNOWLEDGE OF PREGNANCY
     Route: 048
  4. ZOLOFT [Suspect]
     Indication: ANXIETY
     Dosage: 50MG 1X DAILY ORAL
     Route: 048
  5. ZOLOFT [Suspect]
     Indication: DEPRESSION
     Dosage: 50MG 1X DAILY ORAL
     Route: 048
  6. ZOLOFT [Suspect]
     Indication: FEAR
     Dosage: 50MG 1X DAILY ORAL
     Route: 048

REACTIONS (6)
  - ANGER [None]
  - DEPRESSION [None]
  - DRUG WITHDRAWAL SYNDROME [None]
  - FEAR [None]
  - PANIC ATTACK [None]
  - THANATOPHOBIA [None]
